FAERS Safety Report 7313484-6 (Version None)
Quarter: 2011Q1

REPORT INFORMATION
  Report Type: 
  Country: None (occurrence: None)
  Receive Date: 20110215
  Receipt Date: 20110215
  Transmission Date: 20110831
  Serious: Yes (Other)
  Sender: FDA-Public Use
  Company Number: None

PATIENT
  Sex: Female
  Weight: 54.4316 kg

DRUGS (1)
  1. NITROFUR-MARC 100MG MYLAN [Suspect]
     Indication: CYSTITIS
     Dates: start: 20110131, end: 20110210

REACTIONS (11)
  - URTICARIA [None]
  - SOMNOLENCE [None]
  - PARAESTHESIA [None]
  - PRURITUS [None]
  - HEADACHE [None]
  - VOMITING [None]
  - ARTHRALGIA [None]
  - DIZZINESS [None]
  - PYREXIA [None]
  - ASTHENIA [None]
  - DECREASED APPETITE [None]
